FAERS Safety Report 20651730 (Version 1)
Quarter: 2022Q1

REPORT INFORMATION
  Report Type: Spontaneous
  Country: US (occurrence: US)
  Receive Date: 20220330
  Receipt Date: 20220330
  Transmission Date: 20220424
  Serious: Yes (Disabling, Other)
  Sender: FDA-Public Use
  Company Number: US-NOVOPROD-903798

PATIENT
  Age: 69 Year
  Sex: Female

DRUGS (1)
  1. TRESIBA [Suspect]
     Active Substance: INSULIN DEGLUDEC
     Indication: Type 2 diabetes mellitus
     Dosage: 18 UNITS DAILY
     Route: 058

REACTIONS (3)
  - Macular degeneration [Unknown]
  - Blindness [Unknown]
  - Amnesia [Unknown]

NARRATIVE: CASE EVENT DATE: 20170101
